FAERS Safety Report 6730812-0 (Version None)
Quarter: 2010Q2

REPORT INFORMATION
  Report Type: 
  Country: None (occurrence: None)
  Receive Date: 20100518
  Receipt Date: 20100506
  Transmission Date: 20101027
  Serious: Yes (Hospitalization, Other)
  Sender: FDA-Public Use
  Company Number: CA-JNJFOC-20100503120

PATIENT
  Age: 13 Year
  Sex: Female

DRUGS (3)
  1. INFLIXIMAB [Suspect]
     Indication: JUVENILE ARTHRITIS
     Dosage: DURATION OF TREATMENT WAS 6 MONTHS
     Route: 042
  2. METHOTREXATE [Concomitant]
     Indication: JUVENILE ARTHRITIS
     Dosage: DOSE ALSO REPORTED AS 3 MG/KG
  3. NAPROXEN [Concomitant]
     Indication: JUVENILE ARTHRITIS

REACTIONS (4)
  - ABSCESS [None]
  - BETA HAEMOLYTIC STREPTOCOCCAL INFECTION [None]
  - OSTEOMYELITIS [None]
  - SERRATIA INFECTION [None]
